FAERS Safety Report 7448473-4 (Version None)
Quarter: 2011Q2

REPORT INFORMATION
  Report Type: 
  Country: None (occurrence: None)
  Receive Date: 20110429
  Receipt Date: 20100713
  Transmission Date: 20111010
  Serious: No
  Sender: FDA-Public Use
  Company Number: US-ASTRAZENECA-2010SE28497

PATIENT
  Age: 59 Year
  Sex: Female
  Weight: 39.9 kg

DRUGS (4)
  1. NEXIUM [Suspect]
     Indication: GASTROOESOPHAGEAL REFLUX DISEASE
     Route: 048
     Dates: start: 20100616
  2. VALIUM [Concomitant]
  3. CLONIPINE [Concomitant]
  4. MILK THISTLE [Concomitant]

REACTIONS (5)
  - DYSGEUSIA [None]
  - ERUCTATION [None]
  - OROPHARYNGEAL PAIN [None]
  - HYPOAESTHESIA [None]
  - WEIGHT DECREASED [None]
